FAERS Safety Report 4760147-7 (Version None)
Quarter: 2005Q3

REPORT INFORMATION
  Report Type: 
  Country: None (occurrence: None)
  Receive Date: 20050831
  Receipt Date: 20050831
  Transmission Date: 20060218
  Serious: Yes (Hospitalization)
  Sender: FDA-Public Use
  Company Number: None

PATIENT
  Age: 51 Year
  Sex: Female
  Weight: 113.8 kg

DRUGS (9)
  1. VALTREX [Suspect]
     Indication: HERPES ZOSTER
     Dosage: 100MG/QD
     Dates: start: 20050616, end: 20050718
  2. ACYCLOVIR [Concomitant]
  3. PREDNISONE [Concomitant]
  4. NEXIUM [Concomitant]
  5. FLUCONAZOLE [Concomitant]
  6. METFORMIN [Concomitant]
  7. MAGNESIUM OXIDE [Concomitant]
  8. NEURONTIN [Concomitant]
  9. BENADRYL [Concomitant]

REACTIONS (1)
  - AUTOIMMUNE HEPATITIS [None]
